FAERS Safety Report 18046774 (Version 4)
Quarter: 2022Q1

REPORT INFORMATION
  Report Type: Spontaneous
  Country: JP (occurrence: JP)
  Receive Date: 20200720
  Receipt Date: 20220130
  Transmission Date: 20220423
  Serious: Yes (Death, Other)
  Sender: FDA-Public Use
  Company Number: JP-JAZZ-2020-JP-009073

PATIENT
  Age: 21 Year
  Sex: Male
  Weight: 58.9 kg

DRUGS (1)
  1. DEFITELIO [Suspect]
     Active Substance: DEFIBROTIDE SODIUM
     Indication: Venoocclusive liver disease
     Dosage: 12.5 MILLIGRAM/KILOGRAM, QD
     Route: 042
     Dates: start: 20200708, end: 20200708

REACTIONS (3)
  - Cerebral haemorrhage [Fatal]
  - Organ failure [Fatal]
  - Off label use [Unknown]

NARRATIVE: CASE EVENT DATE: 20200708
